FAERS Safety Report 7363919-8 (Version None)
Quarter: 2011Q1

REPORT INFORMATION
  Report Type: 
  Country: None (occurrence: None)
  Receive Date: 20110321
  Receipt Date: 20110113
  Transmission Date: 20110831
  Serious: No
  Sender: FDA-Public Use
  Company Number: US-BAYER-2011-004925

PATIENT
  Sex: Female
  Weight: 53.968 kg

DRUGS (4)
  1. FENTANYL [Concomitant]
  2. ALEVE (CAPLET) [Suspect]
     Indication: BURSITIS
     Dosage: 2 DF, ONCE
     Route: 048
     Dates: start: 20110110, end: 20110110
  3. ALEVE (CAPLET) [Suspect]
     Dosage: 1 DF, BID
     Route: 048
     Dates: start: 20110111
  4. IBANDRONATE SODIUM [Concomitant]

REACTIONS (1)
  - BURSITIS [None]
